FAERS Safety Report 5984544-7 (Version None)
Quarter: 2008Q4

REPORT INFORMATION
  Report Type: 
  Country: None (occurrence: None)
  Receive Date: 20081202
  Receipt Date: 20080618
  Transmission Date: 20090506
  Serious: Yes (Death)
  Sender: FDA-Public Use
  Company Number: 2008S1019326

PATIENT
  Sex: Female

DRUGS (1)
  1. ENALAPRIL MALEATE [Suspect]
     Indication: DRUG USE FOR UNKNOWN INDICATION
     Dosage: TRANSPLACENTAL
     Route: 064
     Dates: end: 20080118

REACTIONS (6)
  - CARDIAC FAILURE [None]
  - DRUG EXPOSURE DURING PREGNANCY [None]
  - DRUG TOXICITY [None]
  - INTRA-UTERINE DEATH [None]
  - RESPIRATORY DISTRESS [None]
  - RESPIRATORY FAILURE [None]
